FAERS Safety Report 8425908-1 (Version None)
Quarter: 2012Q2

REPORT INFORMATION
  Report Type: 
  Country: None (occurrence: None)
  Receive Date: 20120611
  Receipt Date: 20120530
  Transmission Date: 20120825
  Serious: Yes (Hospitalization, Other)
  Sender: FDA-Public Use
  Company Number: FR-NOVOPROD-348651

PATIENT
  Age: 61 Year
  Sex: Male
  Weight: 93 kg

DRUGS (11)
  1. VICTOZA [Suspect]
     Indication: TYPE 2 DIABETES MELLITUS
     Dosage: UNK
     Route: 065
     Dates: start: 20100601, end: 20120201
  2. PREVISCAN                          /00261401/ [Concomitant]
  3. GLICLAZIDE [Concomitant]
     Dosage: 120 MG, QD
     Route: 048
  4. ASPIRIN [Concomitant]
     Dosage: 75 MG, QD
     Route: 048
  5. OMACOR [Concomitant]
  6. CRESTOR [Concomitant]
     Dosage: 10 MG
  7. FUROSEMIDE [Concomitant]
  8. METFORMIN HCL [Concomitant]
     Dosage: 2 G, QD
     Route: 048
  9. IRBESARTAN [Concomitant]
     Dosage: 150 MG, QD
     Route: 048
  10. SPIRONOLACTONE [Concomitant]
  11. NEBIVOLOL [Concomitant]

REACTIONS (1)
  - ADENOCARCINOMA PANCREAS [None]
